FAERS Safety Report 19589809 (Version 1)
Quarter: 2021Q3

REPORT INFORMATION
  Report Type: Spontaneous
  Country: AU (occurrence: AU)
  Receive Date: 20210721
  Receipt Date: 20210721
  Transmission Date: 20211014
  Serious: Yes (Other)
  Sender: FDA-Public Use
  Company Number: AU-ALLERGAN-2034247US

PATIENT
  Sex: Female

DRUGS (2)
  1. BELKYRA [Suspect]
     Active Substance: DEOXYCHOLIC ACID
     Dosage: UNK, SINGLE
     Dates: start: 201707, end: 201707
  2. BELKYRA [Suspect]
     Active Substance: DEOXYCHOLIC ACID
     Indication: PRODUCT USED FOR UNKNOWN INDICATION
     Dosage: UNK, SINGLE
     Dates: start: 201709, end: 201709

REACTIONS (2)
  - Skin laxity [Unknown]
  - Mental impairment [Unknown]

NARRATIVE: CASE EVENT DATE: 202007
